FAERS Safety Report 13739522 (Version 1)
Quarter: 2017Q3

REPORT INFORMATION
  Report Type: Report from Study
  Country: US (occurrence: US)
  Receive Date: 20170711
  Receipt Date: 20170711
  Transmission Date: 20171127
  Serious: Yes (Other)
  Sender: FDA-Public Use
  Company Number: US-ASTELLAS-2017US026647

PATIENT
  Age: 74 Year
  Sex: Male

DRUGS (13)
  1. CROMOLYN                           /00082101/ [Concomitant]
     Indication: OCULAR DISCOMFORT
     Dosage: UNK UNK, UNKNOWN FREQ.
     Route: 047
  2. ERLOTINIB [Suspect]
     Active Substance: ERLOTINIB
     Route: 048
     Dates: start: 201607
  3. IRBESARTAN HCTZ [Concomitant]
     Active Substance: HYDROCHLOROTHIAZIDE\IRBESARTAN
     Indication: HYPERTENSION
     Dosage: 300MG/12.5MG, ONCE DAILY
     Route: 048
  4. ASPIRIN. [Concomitant]
     Active Substance: ASPIRIN
     Indication: PRODUCT USED FOR UNKNOWN INDICATION
     Route: 065
  5. ERLOTINIB [Suspect]
     Active Substance: ERLOTINIB
     Route: 065
  6. ERLOTINIB [Suspect]
     Active Substance: ERLOTINIB
     Route: 048
     Dates: start: 20160627, end: 201607
  7. ATORVASTATIN [Concomitant]
     Active Substance: ATORVASTATIN
     Indication: PRODUCT USED FOR UNKNOWN INDICATION
     Route: 048
  8. RESTASIS [Concomitant]
     Active Substance: CYCLOSPORINE
     Indication: PRODUCT USED FOR UNKNOWN INDICATION
     Dosage: UNK UNK, TWICE DAILY (AM AND PM)
     Route: 047
  9. ERLOTINIB [Suspect]
     Active Substance: ERLOTINIB
     Indication: NON-SMALL CELL LUNG CANCER STAGE IV
     Dosage: UNK UNK, UNKNOWN FREQ.
     Route: 065
     Dates: start: 2016
  10. GABAPENTIN. [Concomitant]
     Active Substance: GABAPENTIN
     Indication: PAIN
     Dosage: 2 IN THE MORNING AND 1 AT NIGHT, STARTED 2 YEARS AGO
     Route: 048
  11. LATANOPROST. [Concomitant]
     Active Substance: LATANOPROST
     Indication: PRODUCT USED FOR UNKNOWN INDICATION
     Dosage: UNK UNK, ONCE DAILY
     Route: 047
  12. FINASTERIDE. [Concomitant]
     Active Substance: FINASTERIDE
     Indication: PROSTATOMEGALY
     Route: 048
  13. VITAMIN B12 [Concomitant]
     Active Substance: CYANOCOBALAMIN
     Indication: PRODUCT USED FOR UNKNOWN INDICATION
     Dosage: UNK UNK, UNKNOWN FREQ.
     Route: 065

REACTIONS (29)
  - Epistaxis [Recovered/Resolved]
  - Blood pressure decreased [Recovering/Resolving]
  - Balance disorder [Not Recovered/Not Resolved]
  - Dry skin [Recovered/Resolved with Sequelae]
  - Cough [Unknown]
  - Oropharyngeal pain [Recovered/Resolved]
  - Rhinorrhoea [Not Recovered/Not Resolved]
  - Sensation of foreign body [Not Recovered/Not Resolved]
  - Mass [Recovering/Resolving]
  - Eye inflammation [Recovered/Resolved with Sequelae]
  - Pulmonary oedema [Unknown]
  - Onychalgia [Not Recovered/Not Resolved]
  - Foreign body sensation in eyes [Not Recovered/Not Resolved]
  - Inflammation [Recovering/Resolving]
  - Musculoskeletal discomfort [Not Recovered/Not Resolved]
  - Hypoacusis [Unknown]
  - Neuralgia [Not Recovered/Not Resolved]
  - Abdominal discomfort [Recovering/Resolving]
  - Skin disorder [Recovered/Resolved]
  - Tinnitus [Unknown]
  - Myalgia [Not Recovered/Not Resolved]
  - Ocular discomfort [Recovered/Resolved with Sequelae]
  - Feeling abnormal [Recovering/Resolving]
  - Skin fissures [Recovering/Resolving]
  - Weight decreased [Recovering/Resolving]
  - Hepatomegaly [Unknown]
  - Pain [Not Recovered/Not Resolved]
  - Pruritus [Not Recovered/Not Resolved]
  - Acne [Recovering/Resolving]

NARRATIVE: CASE EVENT DATE: 20160926
